FAERS Safety Report 12707172 (Version 1)
Quarter: 2016Q3

REPORT INFORMATION
  Report Type: Spontaneous
  Country: US (occurrence: US)
  Receive Date: 20160901
  Receipt Date: 20160901
  Transmission Date: 20161109
  Serious: Yes (Death, Hospitalization)
  Sender: FDA-Public Use
  Company Number: US-BAYER-2016-128501

PATIENT
  Age: 70 Year
  Sex: Female

DRUGS (13)
  1. WELCHOL [Concomitant]
     Active Substance: COLESEVELAM HYDROCHLORIDE
     Indication: PRODUCT USED FOR UNKNOWN INDICATION
     Dosage: 625 MG, UNK
     Route: 065
  2. TEKTURNA [Concomitant]
     Active Substance: ALISKIREN HEMIFUMARATE
     Indication: HYPERTENSION
     Dosage: 150 MG, UNK
     Route: 065
     Dates: start: 2012, end: 20160115
  3. MAGNESIUM [Concomitant]
     Active Substance: MAGNESIUM
     Indication: PRODUCT USED FOR UNKNOWN INDICATION
     Route: 065
  4. XARELTO [Suspect]
     Active Substance: RIVAROXABAN
     Indication: CEREBROVASCULAR ACCIDENT PROPHYLAXIS
     Dosage: UNK
     Route: 048
     Dates: start: 20151208, end: 20151227
  5. ACETYLSALICYLIC ACID({=100 MG) [Suspect]
     Active Substance: ASPIRIN
     Indication: PRODUCT USED FOR UNKNOWN INDICATION
     Dosage: 81 MG, UNK
     Route: 065
  6. JANUMET [Concomitant]
     Active Substance: METFORMIN HYDROCHLORIDE\SITAGLIPTIN PHOSPHATE
     Indication: HYPERTENSION
     Dosage: UNK
     Route: 065
     Dates: start: 2011, end: 20160115
  7. XARELTO [Suspect]
     Active Substance: RIVAROXABAN
     Indication: ATRIAL FIBRILLATION
     Dosage: UNK
     Route: 048
     Dates: start: 20150927, end: 20151127
  8. FEBUXOSTAT. [Concomitant]
     Active Substance: FEBUXOSTAT
     Indication: METABOLIC ACIDOSIS
     Dosage: 40 MG, UNK
     Route: 065
     Dates: start: 2011, end: 20160115
  9. LIPITOR [Concomitant]
     Active Substance: ATORVASTATIN CALCIUM
     Indication: HYPERTENSION
     Dosage: 10 MG, QD
     Route: 065
     Dates: start: 2012, end: 20160115
  10. XARELTO [Suspect]
     Active Substance: RIVAROXABAN
     Indication: THROMBOSIS PROPHYLAXIS
     Dosage: UNK
     Route: 048
     Dates: start: 20160105, end: 20160110
  11. PANTOPRAZOLE [Concomitant]
     Active Substance: PANTOPRAZOLE SODIUM
     Indication: GASTRIC ULCER
     Route: 065
     Dates: start: 2014, end: 20160115
  12. CALCIUM CARBONATE. [Concomitant]
     Active Substance: CALCIUM CARBONATE
     Indication: PRODUCT USED FOR UNKNOWN INDICATION
     Dosage: 1200 MG, UNK
     Route: 065
  13. CARAFATE [Concomitant]
     Active Substance: SUCRALFATE
     Indication: GASTRIC ULCER
     Dosage: UNK
     Route: 065

REACTIONS (6)
  - Acute kidney injury [Recovering/Resolving]
  - Atrial fibrillation [Fatal]
  - Gastrointestinal haemorrhage [Fatal]
  - Intestinal infarction [Fatal]
  - Hypovolaemic shock [Fatal]
  - Gastric ulcer haemorrhage [Recovering/Resolving]

NARRATIVE: CASE EVENT DATE: 201511
